FAERS Safety Report 7460287-8 (Version None)
Quarter: 2011Q2

REPORT INFORMATION
  Report Type: 
  Country: None (occurrence: None)
  Receive Date: 20110505
  Receipt Date: 20110502
  Transmission Date: 20111010
  Serious: Yes (Other)
  Sender: FDA-Public Use
  Company Number: US-RB-024808-11

PATIENT
  Age: 78 Year
  Sex: Male

DRUGS (1)
  1. MUCINEX D [Suspect]
     Route: 048

REACTIONS (1)
  - FAECES DISCOLOURED [None]
